FAERS Safety Report 5253927-5 (Version None)
Quarter: 2007Q1

REPORT INFORMATION
  Report Type: 
  Country: None (occurrence: None)
  Receive Date: 20070228
  Receipt Date: 20070228
  Transmission Date: 20070707
  Serious: Yes (Life-Threatening, Hospitalization, Other)
  Sender: FDA-Public Use
  Company Number: None

PATIENT
  Age: 21 Year
  Sex: Male
  Weight: 102.0593 kg

DRUGS (3)
  1. SEROQUEL [Suspect]
     Indication: ANXIETY
     Dosage: 100MG  ONCE AT BEDTIME PO
     Route: 048
     Dates: start: 20050510, end: 20070227
  2. SEROQUEL [Suspect]
     Indication: DEPRESSION
     Dosage: 100MG  ONCE AT BEDTIME PO
     Route: 048
     Dates: start: 20050510, end: 20070227
  3. SEROQUEL [Suspect]
     Indication: INSOMNIA
     Dosage: 100MG  ONCE AT BEDTIME PO
     Route: 048
     Dates: start: 20050510, end: 20070227

REACTIONS (5)
  - CONDITION AGGRAVATED [None]
  - DEPRESSION [None]
  - DIALYSIS [None]
  - HYPERTENSION [None]
  - RENAL FAILURE CHRONIC [None]
